FAERS Safety Report 11860933 (Version 4)
Quarter: 2016Q2

REPORT INFORMATION
  Report Type: Spontaneous
  Country: IT (occurrence: IT)
  Receive Date: 20151222
  Receipt Date: 20160513
  Transmission Date: 20160815
  Serious: No
  Sender: FDA-Public Use
  Company Number: IT-FRESENIUS KABI-FK201506760

PATIENT
  Age: 65 Year
  Sex: Male

DRUGS (20)
  1. IRINOTECAN (MANUFACTURER UNKNOWN) [Suspect]
     Active Substance: IRINOTECAN
     Route: 041
     Dates: start: 20151116, end: 20151116
  2. TERAZOSIN HYDROCHLORIDE. [Concomitant]
     Active Substance: TERAZOSIN HYDROCHLORIDE
     Dates: start: 20120301, end: 20151130
  3. ANTIHYPERTENSIVE- CALCIUM CHANNEL BLOCKER [Concomitant]
  4. ANTIHYPERTENSIVE- DIURETIC [Concomitant]
  5. ZALTRAP [Suspect]
     Active Substance: ZIV-AFLIBERCEPT
     Indication: COLORECTAL CANCER METASTATIC
     Route: 041
     Dates: start: 20150318, end: 20150318
  6. ANTIEMETIC -CORTICOSTEROIDS [Concomitant]
  7. PROTON PUMP INHIBITORS [Concomitant]
     Active Substance: UNSPECIFIED INGREDIENT
  8. ACE INHIBITORS [Concomitant]
     Active Substance: UNSPECIFIED INGREDIENT
  9. STOMATOLOGICAL DRUGS- CORTICOSTEROIDS [Concomitant]
  10. ZALTRAP [Suspect]
     Active Substance: ZIV-AFLIBERCEPT
     Route: 041
     Dates: start: 20151116, end: 20151116
  11. FLUOROURACIL. [Suspect]
     Active Substance: FLUOROURACIL
     Route: 041
     Dates: start: 20151116
  12. ALLOPURINOL. [Concomitant]
     Active Substance: ALLOPURINOL
     Dates: start: 20150921, end: 20151130
  13. ANTIEMETIC- SEROTONIN (5-HT3) ANTAGONIST [Concomitant]
  14. FLUOROURACIL. [Suspect]
     Active Substance: FLUOROURACIL
     Indication: COLORECTAL CANCER METASTATIC
     Route: 041
     Dates: start: 20150318
  15. ANTIHISTAMINES [Concomitant]
     Active Substance: ANTIHISTAMINES NOS
  16. IRINOTECAN (MANUFACTURER UNKNOWN) [Suspect]
     Active Substance: IRINOTECAN
     Indication: COLORECTAL CANCER METASTATIC
     Route: 041
     Dates: start: 20150318, end: 20150318
  17. METOCLOPRAMIDE HYDROCHLORIDE. [Concomitant]
     Active Substance: METOCLOPRAMIDE HYDROCHLORIDE
     Dates: start: 20120415, end: 20151130
  18. GLUTATHIONE SODIUM [Concomitant]
     Active Substance: GLUTATHIONE
  19. ANTICOAGULANT HEPARIN GROUP [Concomitant]
  20. PREGABALIN. [Concomitant]
     Active Substance: PREGABALIN

REACTIONS (2)
  - Pyrexia [Recovered/Resolved]
  - Asthenia [Recovered/Resolved]

NARRATIVE: CASE EVENT DATE: 20151117
